FAERS Safety Report 14078327 (Version 1)
Quarter: 2017Q4

REPORT INFORMATION
  Report Type: Spontaneous
  Country: US (occurrence: None)
  Receive Date: 20171012
  Receipt Date: 20171012
  Transmission Date: 20180321
  Serious: No
  Sender: FDA-Public Use
  Company Number: None

PATIENT

DRUGS (2)
  1. GUANFACINE HCL [Suspect]
     Active Substance: GUANFACINE HYDROCHLORIDE
  2. GUAIFENESIN. [Suspect]
     Active Substance: GUAIFENESIN

REACTIONS (6)
  - Product name confusion [None]
  - Wrong drug administered [None]
  - Therapy cessation [None]
  - Hypotension [None]
  - Transcription medication error [None]
  - Drug dispensing error [None]
